FAERS Safety Report 16301569 (Version 1)
Quarter: 2019Q2

REPORT INFORMATION
  Report Type: Spontaneous
  Country: CH (occurrence: CH)
  Receive Date: 20190511
  Receipt Date: 20190511
  Transmission Date: 20190711
  Serious: Yes (Death)
  Sender: FDA-Public Use
  Company Number: CH-ABBVIE-19K-151-2648339-00

PATIENT
  Sex: Male
  Weight: 65 kg

DRUGS (4)
  1. POSACONAZOLE [Concomitant]
     Active Substance: POSACONAZOLE
     Indication: PROPHYLAXIS
     Dosage: BEFORE VENETOCLAX THERAPY
     Route: 048
     Dates: end: 20190419
  2. VENCLYXTO [Suspect]
     Active Substance: VENETOCLAX
     Dosage: DOSAGE DECREASED
     Route: 048
     Dates: start: 20181122, end: 20181203
  3. VENCLYXTO [Suspect]
     Active Substance: VENETOCLAX
     Indication: ACUTE MYELOID LEUKAEMIA RECURRENT
     Route: 048
  4. VENCLYXTO [Suspect]
     Active Substance: VENETOCLAX
     Dosage: RAMP UP TO 400MG
     Route: 048
     Dates: start: 20181203, end: 20190226

REACTIONS (5)
  - Neutropenia [Unknown]
  - Haemoglobin abnormal [Unknown]
  - Bone marrow disorder [Unknown]
  - Acute myeloid leukaemia recurrent [Fatal]
  - Off label use [Unknown]
